FAERS Safety Report 25202618 (Version 1)
Quarter: 2025Q2

REPORT INFORMATION
  Report Type: Spontaneous
  Country: IN (occurrence: IN)
  Receive Date: 20250416
  Receipt Date: 20250416
  Transmission Date: 20250717
  Serious: Yes (Other)
  Sender: MYLAN
  Company Number: IN-MYLANLABS-2025M1032252

PATIENT
  Age: 70 Year
  Sex: Male

DRUGS (4)
  1. PHENYTOIN [Interacting]
     Active Substance: PHENYTOIN
     Indication: Epilepsy
  2. CIMETIDINE [Interacting]
     Active Substance: CIMETIDINE
     Indication: Abdominal discomfort
  3. ASPIRIN [Concomitant]
     Active Substance: ASPIRIN
     Indication: Embolic stroke
  4. LOVASTATIN [Concomitant]
     Active Substance: LOVASTATIN
     Indication: Embolic stroke

REACTIONS (4)
  - Cerebellar ataxia [Recovering/Resolving]
  - Toxicity to various agents [Recovering/Resolving]
  - Labelled drug-drug interaction medication error [Recovering/Resolving]
  - Abdominal discomfort [Unknown]
